FAERS Safety Report 25648052 (Version 1)
Quarter: 2025Q3

REPORT INFORMATION
  Report Type: Spontaneous
  Country: EU (occurrence: EU)
  Receive Date: 20250806
  Receipt Date: 20250806
  Transmission Date: 20251020
  Serious: Yes (Other)
  Sender: ULTRAGENYX PHARMACEUTICAL
  Company Number: EU-ULTRAGENYX PHARMACEUTICAL INC.-PT-UGX-25-01438

PATIENT
  Sex: Male

DRUGS (7)
  1. MEPSEVII [Suspect]
     Active Substance: VESTRONIDASE ALFA-VJBK
     Indication: Product used for unknown indication
     Route: 042
  2. MEPSEVII [Suspect]
     Active Substance: VESTRONIDASE ALFA-VJBK
     Route: 042
     Dates: start: 20250204
  3. MEPSEVII [Suspect]
     Active Substance: VESTRONIDASE ALFA-VJBK
     Route: 042
     Dates: start: 20250722
  4. METHYLPREDNISOLONE [Concomitant]
     Active Substance: METHYLPREDNISOLONE
     Indication: Product used for unknown indication
     Route: 042
  5. CLEMASTINE [Concomitant]
     Active Substance: CLEMASTINE
     Indication: Product used for unknown indication
     Route: 042
  6. DEXAMETHASONE [Concomitant]
     Active Substance: DEXAMETHASONE
     Indication: Product used for unknown indication
  7. DESLORATADINE [Concomitant]
     Active Substance: DESLORATADINE
     Indication: Product used for unknown indication

REACTIONS (6)
  - Anaphylactic reaction [Recovered/Resolved]
  - Swelling face [Recovered/Resolved]
  - Ear swelling [Recovered/Resolved]
  - Face oedema [Recovered/Resolved]
  - Ear swelling [Recovered/Resolved]
  - Blood pressure diastolic decreased [Recovered/Resolved]

NARRATIVE: CASE EVENT DATE: 20250121
